FAERS Safety Report 4918973-7 (Version None)
Quarter: 2006Q1

REPORT INFORMATION
  Report Type: 
  Country: None (occurrence: None)
  Receive Date: 20060222
  Receipt Date: 20060216
  Transmission Date: 20060701
  Serious: Yes (Life-Threatening)
  Sender: FDA-Public Use
  Company Number: FR-GLAXOSMITHKLINE-B0412869A

PATIENT
  Age: 47 Year
  Sex: Male
  Weight: 55 kg

DRUGS (9)
  1. AUGMENTIN '125' [Suspect]
     Dosage: 2G PER DAY
     Route: 042
     Dates: start: 20060201, end: 20060201
  2. XYLOCAINE [Suspect]
     Dosage: 13ML PER DAY
     Route: 058
     Dates: start: 20060201, end: 20060201
  3. PROPOFOL [Suspect]
     Dosage: 200MG PER DAY
     Route: 042
     Dates: start: 20060201, end: 20060201
  4. SUFENTANIL CITRATE [Suspect]
     Dosage: 35MCG PER DAY
     Route: 042
     Dates: start: 20060201, end: 20060201
  5. DESFLURANE [Suspect]
     Route: 055
     Dates: start: 20060201, end: 20060201
  6. LEVOTHYROX [Concomitant]
     Route: 065
  7. SERESTA [Concomitant]
     Route: 065
  8. NICOBION [Concomitant]
     Route: 065
  9. DOLIPRANE [Concomitant]
     Route: 065

REACTIONS (5)
  - ANAPHYLACTIC SHOCK [None]
  - HYPOTENSION [None]
  - PCO2 DECREASED [None]
  - RASH GENERALISED [None]
  - TACHYCARDIA [None]
